FAERS Safety Report 20530868 (Version 1)
Quarter: 2022Q1

REPORT INFORMATION
  Report Type: Spontaneous
  Country: US (occurrence: US)
  Receive Date: 20220301
  Receipt Date: 20220301
  Transmission Date: 20220423
  Serious: No
  Sender: FDA-Public Use
  Company Number: US-IGSA-BIG0013765

PATIENT
  Sex: Female
  Weight: 68 kg

DRUGS (17)
  1. PROLASTIN-C LIQUID [Suspect]
     Active Substance: .ALPHA.1-PROTEINASE INHIBITOR HUMAN
     Indication: Alpha-1 antitrypsin deficiency
     Dosage: 4080 MILLIGRAM, Q.WK.
     Route: 042
     Dates: start: 20181018
  2. KLONOPIN [Concomitant]
     Active Substance: CLONAZEPAM
  3. ZYRTEC [Concomitant]
     Active Substance: CETIRIZINE HYDROCHLORIDE
  4. PREMARIN [Concomitant]
     Active Substance: ESTROGENS, CONJUGATED
  5. MIRALAX [Concomitant]
     Active Substance: POLYETHYLENE GLYCOL 3350
  6. XANAX [Concomitant]
     Active Substance: ALPRAZOLAM
  7. IBUPROFEN [Concomitant]
     Active Substance: IBUPROFEN
  8. AXERT [Concomitant]
     Active Substance: ALMOTRIPTAN MALATE
  9. ATROPA BELLADONNA\PHENOBARBITAL [Concomitant]
     Active Substance: ATROPA BELLADONNA\PHENOBARBITAL
  10. CALCIUM\VITAMIN D [Concomitant]
     Active Substance: CALCIUM\VITAMIN D
  11. VITAMIN E [Concomitant]
     Active Substance: .ALPHA.-TOCOPHEROL
  12. CENTRIM [Concomitant]
  13. VITAMIN B-COMPLEX [Concomitant]
     Active Substance: DEXPANTHENOL\NIACINAMIDE\PYRIDOXINE HYDROCHLORIDE\RIBOFLAVIN 5^-PHOSPHATE SODIUM\THIAMINE HYDROCHLOR
  14. NORVASC [Concomitant]
     Active Substance: AMLODIPINE BESYLATE
  15. ASPIRIN [Concomitant]
     Active Substance: ASPIRIN
  16. VITAMIN D NOS [Concomitant]
     Active Substance: VITAMIN D NOS
  17. MULTIVITAL [ASTRAGALUS SPP. EXTRACT;AVENA SATIVA EXTRACT;CRATAEGUS SPP [Concomitant]

REACTIONS (5)
  - Somnolence [Recovering/Resolving]
  - Listless [Recovering/Resolving]
  - Dizziness [Unknown]
  - Headache [Unknown]
  - Motion sickness [Unknown]
